FAERS Safety Report 5143455-X (Version None)
Quarter: 2006Q4

REPORT INFORMATION
  Report Type: 
  Country: None (occurrence: None)
  Receive Date: 20061101
  Receipt Date: 20061101
  Transmission Date: 20070319
  Serious: Yes (Hospitalization)
  Sender: FDA-Public Use
  Company Number: None

PATIENT
  Age: 50 Year
  Sex: Female
  Weight: 70.3075 kg

DRUGS (3)
  1. CETUXIMAB 250MG/M2 (BMS) [Suspect]
     Dosage: 465MG  WEEKLY X 6  IV
     Route: 042
  2. PACLITAXEL [Suspect]
     Dosage: 93MG  WEEKLY X 6  IV
     Route: 042
  3. CARBOPLATIN [Suspect]
     Dosage: AUC=2/279MG  QWEEK X 6  IV
     Route: 042

REACTIONS (3)
  - DEHYDRATION [None]
  - NAUSEA [None]
  - VOMITING [None]
